FAERS Safety Report 21948155 (Version 2)
Quarter: 2023Q1

REPORT INFORMATION
  Report Type: Spontaneous
  Country: US (occurrence: US)
  Receive Date: 20230203
  Receipt Date: 20230211
  Transmission Date: 20230418
  Serious: No
  Sender: FDA-Public Use
  Company Number: US-TEVA-2023-US-2849830

PATIENT
  Age: 63 Year
  Sex: Female

DRUGS (1)
  1. ALPRAZOLAM [Suspect]
     Active Substance: ALPRAZOLAM
     Indication: Seizure
     Route: 065

REACTIONS (5)
  - Throat irritation [Unknown]
  - Arthropod sting [Unknown]
  - Pruritus [Unknown]
  - Product physical issue [Unknown]
  - Product solubility abnormal [Unknown]
